FAERS Safety Report 6101938-X (Version None)
Quarter: 2009Q1

REPORT INFORMATION
  Report Type: 
  Country: None (occurrence: None)
  Receive Date: 20090227
  Receipt Date: 20080910
  Transmission Date: 20090719
  Serious: Yes (Other)
  Sender: FDA-Public Use
  Company Number: 262987

PATIENT
  Age: 18 Year
  Sex: Male
  Weight: 48.9 kg

DRUGS (4)
  1. NUTROPIN AQ [Suspect]
     Indication: NERVOUS SYSTEM DISORDER
     Dosage: 5 MG, QD, SUBCUTANEOUS
     Route: 058
     Dates: start: 20050225, end: 20080605
  2. ACTONEL [Concomitant]
  3. ADDERALL (AMPHETAMINE ASPARTATE, AMPHETAMINE SULFATE, DEXTROAMPHETAMIN [Concomitant]
  4. STRATTERA [Concomitant]

REACTIONS (1)
  - SCOLIOSIS [None]
